FAERS Safety Report 20983307 (Version 2)
Quarter: 2022Q3

REPORT INFORMATION
  Report Type: Spontaneous
  Country: US (occurrence: US)
  Receive Date: 20220620
  Receipt Date: 20220624
  Transmission Date: 20221026
  Serious: No
  Sender: FDA-Public Use
  Company Number: US-NOVARTISPH-NVSC2022US140129

PATIENT
  Age: 69 Year
  Sex: Female

DRUGS (2)
  1. CIPROFLOXACIN [Suspect]
     Active Substance: CIPROFLOXACIN
     Indication: Neurotrophic keratopathy
     Dosage: UNK
     Route: 047
  2. CIPROFLOXACIN [Suspect]
     Active Substance: CIPROFLOXACIN
     Indication: Prophylaxis

REACTIONS (4)
  - Eye complication associated with device [Unknown]
  - Corneal deposits [Unknown]
  - Drug ineffective [Unknown]
  - Product use in unapproved indication [Unknown]
